FAERS Safety Report 5599809-0 (Version None)
Quarter: 2008Q1

REPORT INFORMATION
  Report Type: 
  Country: None (occurrence: None)
  Receive Date: 20080118
  Receipt Date: 20080118
  Transmission Date: 20080703
  Serious: Yes (Hospitalization)
  Sender: FDA-Public Use
  Company Number: None

PATIENT
  Sex: Female
  Weight: 81.6475 kg

DRUGS (2)
  1. VIOXX [Suspect]
     Indication: ANALGESIA
     Dates: start: 19990105, end: 20030920
  2. VIOXX [Suspect]
     Indication: BACK PAIN
     Dates: start: 19990105, end: 20030920

REACTIONS (4)
  - EARLY RETIREMENT [None]
  - ECONOMIC PROBLEM [None]
  - IMPAIRED WORK ABILITY [None]
  - MYOCARDIAL INFARCTION [None]
